FAERS Safety Report 8187526-2 (Version None)
Quarter: 2012Q1

REPORT INFORMATION
  Report Type: 
  Country: None (occurrence: None)
  Receive Date: 20120306
  Receipt Date: 20120228
  Transmission Date: 20120608
  Serious: Yes (Death, Hospitalization, Other)
  Sender: FDA-Public Use
  Company Number: GR-ELI_LILLY_AND_COMPANY-GR201009002260

PATIENT
  Sex: Male
  Weight: 70 kg

DRUGS (10)
  1. NECITUMUMAB (11F8) (LY3012211) [Suspect]
     Indication: NON-SMALL CELL LUNG CANCER STAGE IV
     Dosage: 800 MG, OTHER
     Route: 042
     Dates: start: 20100818
  2. GEMCITABINE HYDROCHLORIDE [Suspect]
     Indication: NON-SMALL CELL LUNG CANCER STAGE IV
     Dosage: 1740 MG, OTHER
     Route: 042
     Dates: start: 20100818
  3. NORVASC [Concomitant]
     Dates: start: 20020101
  4. GLUCOPHAGE [Concomitant]
  5. LONALGAL [Concomitant]
     Dosage: UNK, UNK
  6. CISPLATIN [Suspect]
     Indication: NON-SMALL CELL LUNG CANCER STAGE IV
     Dosage: 135 MG, OTHER
     Route: 042
     Dates: start: 20100818, end: 20100818
  7. DEXAMETHASONE [Concomitant]
  8. DIAMICRON [Concomitant]
  9. CISPLATIN [Suspect]
     Dosage: 102 MG, UNK
     Dates: start: 20100908, end: 20100908
  10. RABEPRAZOLE SODIUM [Concomitant]

REACTIONS (2)
  - PNEUMOTHORAX [None]
  - HAEMOPTYSIS [None]
